FAERS Safety Report 8128235-5 (Version None)
Quarter: 2012Q1

REPORT INFORMATION
  Report Type: 
  Country: None (occurrence: None)
  Receive Date: 20120210
  Receipt Date: 20120207
  Transmission Date: 20120608
  Serious: Yes (Other)
  Sender: FDA-Public Use
  Company Number: US-ROCHE-792609

PATIENT
  Sex: Female
  Weight: 49.486 kg

DRUGS (4)
  1. BIRTH CONTROL (UNK INGREDIENTS) [Concomitant]
     Dates: start: 19960101, end: 19980101
  2. ACCUTANE [Suspect]
     Dosage: FOR 1.5 MONTH
  3. ACCUTANE [Suspect]
     Indication: ACNE
     Dosage: FOR 06 MONTHS
     Route: 065
  4. ACCUTANE [Suspect]
     Dosage: FOR 06 MONTHS

REACTIONS (7)
  - IRRITABLE BOWEL SYNDROME [None]
  - GASTROINTESTINAL DISORDER [None]
  - SUICIDE ATTEMPT [None]
  - COLITIS ULCERATIVE [None]
  - DEPRESSION [None]
  - INFLAMMATORY BOWEL DISEASE [None]
  - EOSINOPHILIC OESOPHAGITIS [None]
